FAERS Safety Report 23589103 (Version 2)
Quarter: 2024Q1

REPORT INFORMATION
  Report Type: Report from Study
  Country: JP (occurrence: JP)
  Receive Date: 20240303
  Receipt Date: 20240310
  Transmission Date: 20240410
  Serious: Yes (Death)
  Sender: FDA-Public Use
  Company Number: JP-ABBVIE-5397565

PATIENT
  Age: 75 Year
  Sex: Male

DRUGS (2)
  1. CARBIDOPA\LEVODOPA [Suspect]
     Active Substance: CARBIDOPA\LEVODOPA
     Indication: Parkinson^s disease
     Dosage: DURATION TEXT: ABOUT 2 YEARS
     Route: 050
     Dates: start: 202210
  2. CARBIDOPA\LEVODOPA [Suspect]
     Active Substance: CARBIDOPA\LEVODOPA

REACTIONS (14)
  - Death [Fatal]
  - Astigmatism [Unknown]
  - Stoma site extravasation [Unknown]
  - Language disorder [Unknown]
  - Dizziness [Unknown]
  - Psychiatric symptom [Unknown]
  - Tremor [Unknown]
  - Memory impairment [Unknown]
  - Fall [Unknown]
  - Visual impairment [Unknown]
  - Mobility decreased [Unknown]
  - Dysphemia [Unknown]
  - Amnesia [Unknown]
  - Musculoskeletal stiffness [Unknown]

NARRATIVE: CASE EVENT DATE: 20230901
